FAERS Safety Report 9844796 (Version 1)
Quarter: 2014Q1

REPORT INFORMATION
  Report Type: Spontaneous
  Country: FR (occurrence: None)
  Receive Date: 20140122
  Receipt Date: 20140122
  Transmission Date: 20141002
  Serious: Yes (Hospitalization)
  Sender: FDA-Public Use
  Company Number: SP07329

PATIENT
  Age: 63 Year
  Sex: Female
  Weight: 72 kg

DRUGS (7)
  1. OSMOPREP [Suspect]
     Indication: BOWEL PREPARATION
     Route: 048
     Dates: start: 20131121, end: 20131121
  2. X-PREP (POWDER FOR ORAL SOLUTION) [Concomitant]
  3. TAREG [Concomitant]
  4. FLUDEX (1/5 MILLIGRAM) [Concomitant]
  5. ZANIDIP (10 MILLIGRAM) [Concomitant]
  6. HYPERIUM [Concomitant]
  7. FENOFIBRATE [Concomitant]

REACTIONS (7)
  - Delayed recovery from anaesthesia [None]
  - Hypokalaemia [None]
  - Pneumonia [None]
  - Acute phosphate nephropathy [None]
  - Renal failure acute [None]
  - Contraindication to medical treatment [None]
  - Drug prescribing error [None]
